FAERS Safety Report 6215046-0 (Version None)
Quarter: 2009Q2

REPORT INFORMATION
  Report Type: 
  Country: None (occurrence: None)
  Receive Date: 20090604
  Receipt Date: 20081212
  Transmission Date: 20091009
  Serious: No
  Sender: FDA-Public Use
  Company Number: US-ASTRAZENECA-2008UW27905

PATIENT
  Age: 59 Year
  Sex: Female
  Weight: 47.2 kg

DRUGS (3)
  1. PRILOSEC [Suspect]
     Indication: GASTROOESOPHAGEAL REFLUX DISEASE
     Dosage: 40 MG
     Route: 048
  2. PREMARIN [Concomitant]
  3. CLARITIN [Concomitant]

REACTIONS (2)
  - ABNORMAL FAECES [None]
  - FLATULENCE [None]
